FAERS Safety Report 9376423 (Version 1)
Quarter: 2013Q3

REPORT INFORMATION
  Report Type: Report from Study
  Country: CA (occurrence: CA)
  Receive Date: 20130701
  Receipt Date: 20130701
  Transmission Date: 20140515
  Serious: Yes (Other)
  Sender: FDA-Public Use
  Company Number: CA-JNJFOC-20130615270

PATIENT
  Age: 50 Year
  Sex: Female
  Weight: 46 kg

DRUGS (1)
  1. REMICADE [Suspect]
     Indication: CROHN^S DISEASE
     Route: 042
     Dates: start: 2008

REACTIONS (4)
  - Intestinal operation [Unknown]
  - Diarrhoea [Unknown]
  - Medical device complication [Recovered/Resolved]
  - Discomfort [Not Recovered/Not Resolved]
